FAERS Safety Report 9239696 (Version 3)
Quarter: 2013Q2

REPORT INFORMATION
  Report Type: Spontaneous
  Country: GR (occurrence: GR)
  Receive Date: 20130418
  Receipt Date: 20130520
  Transmission Date: 20140414
  Serious: Yes (Other)
  Sender: FDA-Public Use
  Company Number: GR-BIOMARINAP-GR-2013-100653

PATIENT
  Age: 30 Year
  Sex: Female
  Weight: 63 kg

DRUGS (9)
  1. ALDURAZYME [Suspect]
     Indication: MUCOPOLYSACCHARIDOSIS I
     Dosage: 0.58 MG/KG, QW
     Route: 042
     Dates: start: 20041018
  2. CORTISONE [Concomitant]
     Indication: PREMEDICATION
     Dosage: UNK
  3. VITAMIN C                          /00008001/ [Concomitant]
     Indication: PRODUCT USED FOR UNKNOWN INDICATION
  4. FOLIC ACID [Concomitant]
     Indication: PRODUCT USED FOR UNKNOWN INDICATION
  5. GLUTAMINE [Concomitant]
     Indication: PRODUCT USED FOR UNKNOWN INDICATION
  6. ECHINACEA SPP [Concomitant]
     Indication: PRODUCT USED FOR UNKNOWN INDICATION
  7. SILYBUM MARIANUM [Concomitant]
     Indication: PRODUCT USED FOR UNKNOWN INDICATION
  8. PARIET [Concomitant]
     Indication: PRODUCT USED FOR UNKNOWN INDICATION
     Dosage: UNK
     Dates: start: 20130301, end: 20130502
  9. MEBETIN [Concomitant]
     Indication: PRODUCT USED FOR UNKNOWN INDICATION
     Dosage: 135 MG, UNK
     Dates: start: 20130503

REACTIONS (2)
  - Palpitations [Recovered/Resolved]
  - Abdominal pain upper [Recovered/Resolved]
